FAERS Safety Report 6400873-7 (Version None)
Quarter: 2009Q4

REPORT INFORMATION
  Report Type: 
  Country: None (occurrence: None)
  Receive Date: 20091009
  Receipt Date: 20090929
  Transmission Date: 20100525
  Serious: Yes (Other)
  Sender: FDA-Public Use
  Company Number: 236779K09USA

PATIENT
  Age: 42 Year
  Sex: Female

DRUGS (6)
  1. REBIF [Suspect]
     Indication: MULTIPLE SCLEROSIS
     Dosage: 44 MCG, 3 IN 1 WEEKS, SUBCUTANEOUS
     Route: 058
     Dates: start: 20021113, end: 20090201
  2. COLACE (DOCUSATE SODIUM) [Suspect]
     Indication: CONSTIPATION
     Dosage: NOT REPORTED, NOT REPORTED, NOT REPORTED
  3. SINGULAIR [Suspect]
     Indication: ASTHMA
     Dosage: NOT REPORTED
  4. ALBUTEROL [Suspect]
     Indication: ASTHMA
     Dosage: NOT REPORTED
  5. MULTI-VITAMINS [Concomitant]
  6. IRON (IRON) [Concomitant]

REACTIONS (7)
  - BREECH DELIVERY [None]
  - CONDITION AGGRAVATED [None]
  - CONSTIPATION [None]
  - DRUG EXPOSURE DURING PREGNANCY [None]
  - PREMATURE LABOUR [None]
  - PREMATURE RUPTURE OF MEMBRANES [None]
  - UTERINE LEIOMYOMA [None]
